FAERS Safety Report 8295102-6 (Version None)
Quarter: 2012Q2

REPORT INFORMATION
  Report Type: 
  Country: None (occurrence: None)
  Receive Date: 20120416
  Receipt Date: 20120330
  Transmission Date: 20120825
  Serious: No
  Sender: FDA-Public Use
  Company Number: 2012P1009731

PATIENT

DRUGS (2)
  1. NAPROXEN [Suspect]
     Indication: POLYARTHRITIS
     Dates: end: 20111201
  2. PRED FORTE [Suspect]
     Indication: EYE OEDEMA
     Dosage: OPH
     Route: 047

REACTIONS (2)
  - INTRAOCULAR PRESSURE INCREASED [None]
  - DRUG INEFFECTIVE [None]
